FAERS Safety Report 9024648 (Version 1)
Quarter: 2013Q1

REPORT INFORMATION
  Report Type: Spontaneous
  Country: US (occurrence: US)
  Receive Date: 20130120
  Receipt Date: 20130120
  Transmission Date: 20140127
  Serious: Yes (Hospitalization)
  Sender: FDA-Public Use
  Company Number: PHHY2013US004666

PATIENT
  Age: 41 Year
  Sex: Male

DRUGS (4)
  1. MIRTAZAPINE [Suspect]
     Dosage: 15 MG, UNK
  2. TRAZODONE [Suspect]
     Indication: SLEEP DISORDER
     Dosage: 200 MG, AT BED TIME
  3. TRAZODONE [Suspect]
     Dosage: 100 MG, AT BED TIME
  4. OXYCODONE [Concomitant]

REACTIONS (2)
  - Priapism [Recovered/Resolved]
  - Painful erection [Recovered/Resolved]
